FAERS Safety Report 5361366-1 (Version None)
Quarter: 2007Q2

REPORT INFORMATION
  Report Type: 
  Country: None (occurrence: None)
  Receive Date: 20070612
  Receipt Date: 20070529
  Transmission Date: 20071010
  Serious: Yes (Hospitalization)
  Sender: FDA-Public Use
  Company Number: MEDI-0005459

PATIENT
  Age: 3 Month
  Sex: Female
  Weight: 6.39 kg

DRUGS (2)
  1. SYNAGIS [Suspect]
     Indication: IMMUNISATION
     Dosage: 50 MG; INTRAMUSCULAR
     Route: 030
     Dates: start: 20070108, end: 20070215
  2. SYNAGIS [Suspect]
     Indication: IMMUNISATION
     Dosage: 50 MG; INTRAMUSCULAR
     Route: 030
     Dates: start: 20070108

REACTIONS (1)
  - RESPIRATORY SYNCYTIAL VIRUS BRONCHIOLITIS [None]
